FAERS Safety Report 5734732-X (Version None)
Quarter: 2008Q2

REPORT INFORMATION
  Report Type: 
  Country: None (occurrence: None)
  Receive Date: 20080512
  Receipt Date: 20080505
  Transmission Date: 20081010
  Serious: Yes (Death)
  Sender: FDA-Public Use
  Company Number: NL-NOVOPROD-275085

PATIENT
  Age: 28 Week
  Sex: Male
  Weight: 0.87 kg

DRUGS (1)
  1. NOVORAPID FLEXPEN [Suspect]
     Indication: DRUG EXPOSURE DURING PREGNANCY
     Route: 064

REACTIONS (1)
  - INTRA-UTERINE DEATH [None]
